FAERS Safety Report 6316698-7 (Version None)
Quarter: 2009Q3

REPORT INFORMATION
  Report Type: 
  Country: None (occurrence: None)
  Receive Date: 20090820
  Receipt Date: 20090818
  Transmission Date: 20100115
  Serious: Yes (Hospitalization)
  Sender: FDA-Public Use
  Company Number: US-BRISTOL-MYERS SQUIBB COMPANY-14741771

PATIENT
  Age: 46 Year
  Sex: Male

DRUGS (1)
  1. ERBITUX [Suspect]
     Indication: COLORECTAL CANCER
     Dates: start: 20090811

REACTIONS (1)
  - MENINGITIS ASEPTIC [None]
